FAERS Safety Report 13952733 (Version 1)
Quarter: 2017Q3

REPORT INFORMATION
  Report Type: Spontaneous
  Country: US (occurrence: US)
  Receive Date: 20170911
  Receipt Date: 20170911
  Transmission Date: 20171128
  Serious: No
  Sender: FDA-Public Use
  Company Number: US-TEVA-775994USA

PATIENT
  Age: 64 Year
  Sex: Female

DRUGS (1)
  1. FENTANYL. [Suspect]
     Active Substance: FENTANYL
     Indication: ARTHRALGIA
     Route: 062
     Dates: start: 201703

REACTIONS (17)
  - Headache [Recovered/Resolved]
  - Restlessness [Recovered/Resolved]
  - Malaise [Unknown]
  - Decreased appetite [Unknown]
  - Somnolence [Unknown]
  - Drug ineffective [Unknown]
  - Anxiety [Recovered/Resolved]
  - Middle insomnia [Recovered/Resolved]
  - Speech disorder [Unknown]
  - Night sweats [Unknown]
  - Dizziness [Unknown]
  - Confusional state [Unknown]
  - Nausea [Recovered/Resolved]
  - Nightmare [Recovered/Resolved]
  - Memory impairment [Recovered/Resolved]
  - Dyskinesia [Recovered/Resolved]
  - Formication [Recovered/Resolved]

NARRATIVE: CASE EVENT DATE: 201703
